FAERS Safety Report 21331816 (Version 1)
Quarter: 2022Q3

REPORT INFORMATION
  Report Type: Spontaneous
  Country: AU (occurrence: AU)
  Receive Date: 20220914
  Receipt Date: 20220914
  Transmission Date: 20221026
  Serious: Yes (Other)
  Sender: FDA-Public Use
  Company Number: AU-SUN PHARMACEUTICAL INDUSTRIES LTD-2022RR-354134

PATIENT
  Age: 59 Year
  Sex: Male

DRUGS (4)
  1. DIAZEPAM [Suspect]
     Active Substance: DIAZEPAM
     Indication: Sedation
     Dosage: 30 MILLIGRAM, UNK
     Route: 048
  2. TRAMADOL [Suspect]
     Active Substance: TRAMADOL
     Indication: Product used for unknown indication
     Dosage: 800 MILLIGRAM, DAILY
     Route: 065
  3. DROPERIDOL [Suspect]
     Active Substance: DROPERIDOL
     Indication: Sedation
     Dosage: 20 MILLIGRAM, UNK
     Route: 030
  4. LORAZEPAM [Suspect]
     Active Substance: LORAZEPAM
     Indication: Sedation
     Dosage: 13 MILLIGRAM, IN TOTAL OVER 10 H
     Route: 030

REACTIONS (3)
  - Behaviour disorder [Recovering/Resolving]
  - Withdrawal syndrome [Unknown]
  - Drug ineffective [Unknown]
